FAERS Safety Report 4676499-2 (Version None)
Quarter: 2005Q2

REPORT INFORMATION
  Report Type: 
  Country: None (occurrence: None)
  Receive Date: 20050525
  Receipt Date: 20050513
  Transmission Date: 20051028
  Serious: Yes (Disabling)
  Sender: FDA-Public Use
  Company Number: 2005075577

PATIENT
  Age: 67 Year
  Sex: Male
  Weight: 70 kg

DRUGS (2)
  1. GABAPENTIN [Suspect]
     Indication: ILL-DEFINED DISORDER
     Dosage: 600 MG (200 MG, 3 IN 3 D), ORAL
     Route: 048
     Dates: start: 20040101
  2. TOLTERODINE TARTRATE [Concomitant]

REACTIONS (2)
  - ARTHRALGIA [None]
  - CONDITION AGGRAVATED [None]
